FAERS Safety Report 7447042-X (Version None)
Quarter: 2011Q2

REPORT INFORMATION
  Report Type: 
  Country: None (occurrence: None)
  Receive Date: 20110429
  Receipt Date: 20110421
  Transmission Date: 20111010
  Serious: Yes (Congenital Anomaly, Other)
  Sender: FDA-Public Use
  Company Number: US-PFIZER INC-2011089808

PATIENT
  Sex: Male
  Weight: 4 kg

DRUGS (8)
  1. SERTRALINE HYDROCHLORIDE [Suspect]
     Dosage: 100 MG
  2. WELLBUTRIN [Concomitant]
     Indication: DEPRESSION
     Dosage: UNK
     Route: 064
     Dates: end: 20080813
  3. ZOLOFT [Suspect]
     Indication: DEPRESSION
     Dosage: UNK
     Route: 064
     Dates: start: 20080813
  4. PRENATAL VITAMINS [Concomitant]
     Route: 064
  5. EUGYNON [Concomitant]
     Route: 064
  6. CYMBALTA [Concomitant]
     Indication: DEPRESSION
     Dosage: UNK
     Route: 064
     Dates: end: 20080813
  7. VALTREX [Concomitant]
     Route: 064
  8. SERTRALINE HYDROCHLORIDE [Suspect]
     Indication: DEPRESSION
     Dosage: 50 MG,
     Route: 064

REACTIONS (10)
  - PLAGIOCEPHALY [None]
  - OTITIS MEDIA [None]
  - PNEUMONIA [None]
  - CEPHALHAEMATOMA [None]
  - DRUG EXPOSURE DURING PREGNANCY [None]
  - SCAPHOCEPHALY [None]
  - UPPER RESPIRATORY TRACT INFECTION [None]
  - LOWER RESPIRATORY TRACT INFECTION [None]
  - CRANIOSYNOSTOSIS [None]
  - CONJUNCTIVITIS [None]
